FAERS Safety Report 9797061 (Version 1)
Quarter: 2014Q1

REPORT INFORMATION
  Report Type: Spontaneous
  Country: JP (occurrence: JP)
  Receive Date: 20140105
  Receipt Date: 20140105
  Transmission Date: 20141002
  Serious: Yes (Other)
  Sender: FDA-Public Use
  Company Number: JP-MYLANLABS-2013S1029000

PATIENT
  Age: 11 Year
  Sex: Female
  Weight: 35.1 kg

DRUGS (2)
  1. THIAMAZOLE [Suspect]
     Indication: BASEDOW^S DISEASE
     Dosage: 20 MG/D, THEN 50 MG/D
     Route: 065
  2. THIAMAZOLE [Suspect]
     Indication: BASEDOW^S DISEASE
     Dosage: 50 MG/D
     Route: 065

REACTIONS (3)
  - Polyarthritis [Recovering/Resolving]
  - Rash [Recovered/Resolved]
  - Pyrexia [Recovered/Resolved]
